FAERS Safety Report 19692360 (Version 2)
Quarter: 2021Q3

REPORT INFORMATION
  Report Type: Spontaneous
  Country: UA (occurrence: UA)
  Receive Date: 20210812
  Receipt Date: 20210909
  Transmission Date: 20211014
  Serious: Yes (Hospitalization, Other)
  Sender: FDA-Public Use
  Company Number: UA-SA-2021SA264178

PATIENT
  Age: 7 Year
  Sex: Female

DRUGS (2)
  1. MYOZYME [Suspect]
     Active Substance: ALGLUCOSIDASE ALFA
     Dosage: 30 MG/KG , AFTER 1.5 YEARS
  2. MYOZYME [Suspect]
     Active Substance: ALGLUCOSIDASE ALFA
     Indication: GLYCOGEN STORAGE DISEASE TYPE II
     Dosage: 20 MG/KG AT 10 MONTHS

REACTIONS (14)
  - Condition aggravated [Unknown]
  - Product availability issue [Unknown]
  - Sputum retention [Unknown]
  - Gait disturbance [Unknown]
  - Oxygen saturation decreased [Unknown]
  - Muscular weakness [Unknown]
  - Pneumonia viral [Recovered/Resolved]
  - Myopathy [Unknown]
  - Product dose omission issue [Unknown]
  - Respiratory tract infection viral [Unknown]
  - Asthenia [Unknown]
  - Bronchitis viral [Unknown]
  - Alanine aminotransferase increased [Unknown]
  - Blood creatine phosphokinase increased [Unknown]
